FAERS Safety Report 5787201-5 (Version None)
Quarter: 2008Q2

REPORT INFORMATION
  Report Type: 
  Country: None (occurrence: None)
  Receive Date: 20080625
  Receipt Date: 20071018
  Transmission Date: 20081010
  Serious: No
  Sender: FDA-Public Use
  Company Number: US-ASTRAZENECA-2007UW22497

PATIENT
  Age: 76 Year
  Sex: Female
  Weight: 88.5 kg

DRUGS (5)
  1. PULMICORT FLEXHALER [Suspect]
     Indication: EMPHYSEMA
     Route: 055
     Dates: start: 20070924
  2. SPIRIVA [Concomitant]
  3. SEREVENT [Concomitant]
  4. LEXAPRO [Concomitant]
  5. ALPRAZOLAM [Concomitant]

REACTIONS (2)
  - ANXIETY [None]
  - TENSION [None]
